FAERS Safety Report 4690171-4 (Version None)
Quarter: 2005Q2

REPORT INFORMATION
  Report Type: 
  Country: None (occurrence: None)
  Receive Date: 20050613
  Receipt Date: 20050602
  Transmission Date: 20051028
  Serious: Yes (Other)
  Sender: FDA-Public Use
  Company Number: 214985

PATIENT
  Age: 47 Year
  Sex: Female
  Weight: 38.9 kg

DRUGS (7)
  1. RITUXAN [Suspect]
     Indication: NON-HODGKIN'S LYMPHOMA
     Dosage: 480 MG, 1/WEEK, INTRAVENOUS
     Route: 042
     Dates: start: 20020205, end: 20020612
  2. CYCLOPHOSPHAMIDE [Suspect]
     Indication: NON-HODGKIN'S LYMPHOMA
     Dosage: 970 MG INTRAVENOUS
     Route: 042
     Dates: start: 20020207
  3. DOXORUBICIN HYDROCHLORIDE [Suspect]
     Indication: NON-HODGKIN'S LYMPHOMA
     Dosage: 65 MG INTRAVENOUS
     Route: 042
     Dates: start: 20020207
  4. VINCRISTINE SULFATE [Suspect]
     Indication: NON-HODGKIN'S LYMPHOMA
     Dosage: 1.8 MG INTRAVENOUS
     Route: 042
     Dates: start: 20020207
  5. PREDNISONE [Suspect]
     Indication: NON-HODGKIN'S LYMPHOMA
     Dosage: 80 MG QDX5D/28DC, ORAL
     Route: 048
     Dates: start: 20020207
  6. IBUPROFEN [Concomitant]
  7. DEXCHLORPHENIRAMINE MALEATE [Concomitant]

REACTIONS (1)
  - NEUTROPHIL COUNT DECREASED [None]
